FAERS Safety Report 19512699 (Version 1)
Quarter: 2021Q3

REPORT INFORMATION
  Report Type: Other
  Country: US (occurrence: US)
  Receive Date: 20210709
  Receipt Date: 20210709
  Transmission Date: 20211014
  Serious: Yes (Hospitalization)
  Sender: FDA-Public Use
  Company Number: US-B.BRAUN MEDICAL INC.-2113652

PATIENT
  Age: 38 Year
  Sex: Male

DRUGS (1)
  1. ACETAMINOPHEN. [Suspect]
     Active Substance: ACETAMINOPHEN
     Indication: INTENTIONAL OVERDOSE

REACTIONS (6)
  - Renal impairment [None]
  - Methaemoglobinaemia [None]
  - Haemolytic anaemia [None]
  - Intentional overdose [None]
  - Nausea [None]
  - Transaminases increased [None]
